FAERS Safety Report 10960414 (Version 1)
Quarter: 2015Q1

REPORT INFORMATION
  Report Type: Spontaneous
  Country: CA (occurrence: CA)
  Receive Date: 20150327
  Receipt Date: 20150327
  Transmission Date: 20150721
  Serious: Yes (Hospitalization)
  Sender: FDA-Public Use
  Company Number: CA-TEVA-550639ACC

PATIENT
  Age: 10 Year
  Sex: Female
  Weight: 31 kg

DRUGS (2)
  1. MORPHINE [Suspect]
     Active Substance: MORPHINE
     Indication: PAIN
     Route: 048
  2. ACETAMINOPHEN. [Concomitant]
     Active Substance: ACETAMINOPHEN
     Dosage: UNKNOWN FORM STRENGTH
     Route: 065

REACTIONS (3)
  - Haematemesis [Recovered/Resolved]
  - Heart rate decreased [Recovered/Resolved]
  - Cyanosis [Recovered/Resolved]
